FAERS Safety Report 14571739 (Version 1)
Quarter: 2018Q1

REPORT INFORMATION
  Report Type: Spontaneous
  Country: US (occurrence: US)
  Receive Date: 20180226
  Receipt Date: 20180226
  Transmission Date: 20180509
  Serious: No
  Sender: FDA-Public Use
  Company Number: US-PFIZER INC-2016312755

PATIENT
  Age: 79 Year
  Sex: Male

DRUGS (17)
  1. LYRICA [Suspect]
     Active Substance: PREGABALIN
     Dosage: 150 MG, 2X/DAY
     Route: 048
  2. FOLIC ACID. [Concomitant]
     Active Substance: FOLIC ACID
     Dosage: UNK UNK, 1X/DAY
  3. LISINOPRIL AND HYDROCHLOROTHIAZIDE [Concomitant]
     Active Substance: HYDROCHLOROTHIAZIDE\LISINOPRIL
     Dosage: 2 DF, DAILY [HYDROCHLOROTHIAZIDE: 12.5 MG/ LISINOPRIL: 20 MG (2 PO DAILY)
     Route: 048
  4. NOVOLOG MIX 70/30 [Concomitant]
     Active Substance: INSULIN ASPART
     Dosage: UNK [INSULIN ASPART: 70, PROTAMINE: 30] (INJECT 60 UNITS IN THE MORNING AND 40 UNITS IN THE EVENING)
     Route: 058
  5. ZOLPIDEM [Concomitant]
     Active Substance: ZOLPIDEM\ZOLPIDEM TARTRATE
     Dosage: 5 MG, DAILY (EVERY DAY BY ORAL ROUTE AT BEDTIME)
     Route: 048
  6. ASPIRIN. [Concomitant]
     Active Substance: ASPIRIN
     Dosage: 81 MG, DAILY (1 TABLET EVERY DAY)
     Route: 048
  7. GLIMEPIRIDE. [Concomitant]
     Active Substance: GLIMEPIRIDE
     Dosage: 4 MG, 1X/DAY
     Route: 048
  8. HYDROCODONE/ACETAMINOPHEN [Concomitant]
     Active Substance: ACETAMINOPHEN\HYDROCODONE
     Dosage: 1 DF, AS NEEDED [HYDROCODONE BITARTRATE: 5 MG/PARACETAMOL:325 MG] (EVERY 8 HOURS)
     Route: 048
  9. BYSTOLIC [Concomitant]
     Active Substance: NEBIVOLOL HYDROCHLORIDE
     Dosage: 10 MG, 1X/DAY
     Route: 048
  10. FELODIPINE. [Concomitant]
     Active Substance: FELODIPINE
     Dosage: 10 MG, 1X/DAY (TAKE 1 TABLET EVERY DAY BY ORAL ROUTE FOR 30 DAYS)
     Route: 048
  11. ISOSORBIDE MONONITRATE. [Concomitant]
     Active Substance: ISOSORBIDE MONONITRATE
     Dosage: 30 MG, 1X/DAY
     Route: 048
  12. TRIAMCINOLONE ACETONIDE. [Concomitant]
     Active Substance: TRIAMCINOLONE ACETONIDE
     Dosage: UNK, 2X/DAY (APPLY 1 APPLICATION(S) TWICE A DAY BY TOPICAL ROUTE AS DIRECTED)
     Route: 061
  13. VITAMIN D2 [Concomitant]
     Active Substance: ERGOCALCIFEROL
     Dosage: 50000 IU, WEEKLY (TAKE 1 CAPSULE EVERY WEEK BY ORAL ROUTE FOR 84 DAYS)
     Route: 048
  14. FLUOXETINE [Concomitant]
     Active Substance: FLUOXETINE HYDROCHLORIDE
     Dosage: 20 MG, 1X/DAY (TAKE 1 CAPSULE EVERY DAY BY ORAL ROUTE FOR 30 DAYS)
     Route: 048
  15. NITROSTAT [Concomitant]
     Active Substance: NITROGLYCERIN
     Dosage: 0.3 MG, UNK (PLACE 1 TABLET (0.3 MG) BY SUB-LINGUAL ROUTE AT THE FIRST SIGN OF AN ATTACK;)
     Route: 060
  16. LASIX [Concomitant]
     Active Substance: FUROSEMIDE
     Dosage: 20 MG, 1X/DAY (FOR 30 DAYS)
     Route: 048
  17. RANITIDINE. [Concomitant]
     Active Substance: RANITIDINE
     Dosage: 300 MG, 1X/DAY (FOR 30 DAYS)
     Route: 048

REACTIONS (3)
  - Irritability [Unknown]
  - Pain in extremity [Unknown]
  - Emotional disorder [Unknown]
